FAERS Safety Report 26063584 (Version 1)
Quarter: 2025Q4

REPORT INFORMATION
  Report Type: Spontaneous
  Country: JP (occurrence: JP)
  Receive Date: 20251119
  Receipt Date: 20251119
  Transmission Date: 20260117
  Serious: Yes (Hospitalization)
  Sender: WAYLIS THERAPEUTICS LLC
  Company Number: JP-WT-2025-10208

PATIENT
  Age: 4 Decade
  Sex: Female

DRUGS (7)
  1. LUNESTA [Suspect]
     Active Substance: ESZOPICLONE
     Dosage: 7 TABLETS
     Route: 048
  2. FLUNITRAZEPAM [Suspect]
     Active Substance: FLUNITRAZEPAM
     Dosage: 7 TABLETS
     Route: 048
  3. ESCITALOPRAM [Concomitant]
     Active Substance: ESCITALOPRAM OXALATE
     Dosage: 7 TABLETS
     Route: 048
  4. QUETIAPINE [Concomitant]
     Active Substance: QUETIAPINE
     Dosage: 4 TABLETS OF 100 MG
     Route: 048
  5. QUETIAPINE [Concomitant]
     Active Substance: QUETIAPINE
     Route: 048
  6. RIVOTRIL [Concomitant]
     Active Substance: CLONAZEPAM
     Dosage: 7 TABLETS
     Route: 048
  7. DIPHENHYDRAMINE HYDROCHLORIDE [Concomitant]
     Active Substance: DIPHENHYDRAMINE HYDROCHLORIDE
     Dosage: 12 TABLETS
     Route: 048

REACTIONS (4)
  - Loss of consciousness [Unknown]
  - Pneumonia aspiration [Unknown]
  - Intentional overdose [Unknown]
  - Toxicity to various agents [Unknown]
